FAERS Safety Report 18540634 (Version 1)
Quarter: 2020Q4

REPORT INFORMATION
  Report Type: Spontaneous
  Country: US (occurrence: US)
  Receive Date: 20201124
  Receipt Date: 20201124
  Transmission Date: 20210114
  Serious: No
  Sender: FDA-Public Use
  Company Number: US-VERTEX PHARMACEUTICALS-2020-022995

PATIENT
  Sex: Male
  Weight: 47 kg

DRUGS (32)
  1. ZONEGRAN [Concomitant]
     Active Substance: ZONISAMIDE
     Dosage: 25 MG
  2. VIMPAT [Concomitant]
     Active Substance: LACOSAMIDE
  3. MEPHYTON [Concomitant]
     Active Substance: PHYTONADIONE
     Dosage: 5 MG
  4. ZYVOX [Concomitant]
     Active Substance: LINEZOLID
     Dosage: 600 MG
  5. PREVACID [Concomitant]
     Active Substance: LANSOPRAZOLE
     Dosage: 15 MG
  6. NORMAL SALINE [Concomitant]
     Active Substance: SODIUM CHLORIDE
  7. MIRALAX [Concomitant]
     Active Substance: POLYETHYLENE GLYCOL 3350
  8. POTASSIUM CITRATE - CITRIC ACID CRYSTALS [Concomitant]
  9. VITAMIN D3 [Concomitant]
     Active Substance: CHOLECALCIFEROL
  10. VENTOLIN HFA [Concomitant]
     Active Substance: ALBUTEROL SULFATE
     Dosage: 90 MICROGRAM
  11. PULMOZYME [Concomitant]
     Active Substance: DORNASE ALFA
  12. OMEPRAZOLE. [Concomitant]
     Active Substance: OMEPRAZOLE
     Dosage: 20 MG
  13. ZANTAC 75 [Concomitant]
     Active Substance: RANITIDINE HYDROCHLORIDE
     Dosage: 75 MG
  14. CREON [Concomitant]
     Active Substance: PANCRELIPASE AMYLASE\PANCRELIPASE LIPASE\PANCRELIPASE PROTEASE
  15. FERROUS SULFATE. [Concomitant]
     Active Substance: FERROUS SULFATE
     Dosage: 325 MG
  16. ALBUTEROL SULFATE. [Concomitant]
     Active Substance: ALBUTEROL SULFATE
  17. TRIKAFTA [Suspect]
     Active Substance: ELEXACAFTOR\IVACAFTOR\TEZACAFTOR
     Indication: CYSTIC FIBROSIS
     Dosage: 2 TABS (ELEXA100MG/TEZA50MG/IVA75MG) IN AM AND 1 TAB (IVA150MG) IN PM
     Route: 048
  18. HYPERSAL [Concomitant]
     Active Substance: SODIUM CHLORIDE
     Dosage: 7 %
  19. TRETINOIN. [Concomitant]
     Active Substance: TRETINOIN
     Dosage: 0.25 %
  20. GUANFACINE HCL [Concomitant]
     Active Substance: GUANFACINE HYDROCHLORIDE
     Dosage: 1 MG
  21. DIASTAT [DIAZEPAM] [Concomitant]
     Dosage: 2.5 MG
  22. DOXYCYCLINE MONOHYDRATE [Concomitant]
     Active Substance: DOXYCYCLINE
     Dosage: 75 MG
  23. BENZOYL PEROXIDE. [Concomitant]
     Active Substance: BENZOYL PEROXIDE
     Dosage: 10 %
  24. BACTRIM DS [Concomitant]
     Active Substance: SULFAMETHOXAZOLE\TRIMETHOPRIM
  25. LAMOTRIGINE. [Concomitant]
     Active Substance: LAMOTRIGINE
     Dosage: 100 MG
  26. EPIPEN [Concomitant]
     Active Substance: EPINEPHRINE
  27. HEPARIN [Concomitant]
     Active Substance: HEPARIN SODIUM
  28. ONFI [Concomitant]
     Active Substance: CLOBAZAM
     Dosage: 10 MG
  29. ACETAMINOPHEN. [Concomitant]
     Active Substance: ACETAMINOPHEN
     Dosage: 325 MG
  30. MELATONIN [Concomitant]
     Active Substance: MELATONIN
     Dosage: 1 MG
  31. VALIUM [Concomitant]
     Active Substance: DIAZEPAM
     Dosage: 10 MG
  32. BANZEL [Concomitant]
     Active Substance: RUFINAMIDE
     Dosage: 200 MG

REACTIONS (1)
  - Infective pulmonary exacerbation of cystic fibrosis [Not Recovered/Not Resolved]

NARRATIVE: CASE EVENT DATE: 2020
